FAERS Safety Report 20811606 (Version 1)
Quarter: 2022Q2

REPORT INFORMATION
  Report Type: Spontaneous
  Country: US (occurrence: US)
  Receive Date: 20220510
  Receipt Date: 20220510
  Transmission Date: 20220721
  Serious: Yes (Other)
  Sender: FDA-Public Use
  Company Number: US-BRISTOL-MYERS SQUIBB COMPANY-2022-031086

PATIENT
  Age: 74 Year
  Sex: Male
  Weight: 105.23 kg

DRUGS (1)
  1. REVLIMID [Suspect]
     Active Substance: LENALIDOMIDE
     Indication: Plasma cell myeloma
     Dosage: 1 CAPSULE ONCE DAILY FOR 28 DAYS
     Route: 048
     Dates: start: 20170424

REACTIONS (3)
  - Arthropathy [Recovering/Resolving]
  - Joint effusion [Unknown]
  - Product dose omission issue [Unknown]
